FAERS Safety Report 20721119 (Version 1)
Quarter: 2022Q2

REPORT INFORMATION
  Report Type: Spontaneous
  Country: US (occurrence: None)
  Receive Date: 20220415
  Receipt Date: 20220415
  Transmission Date: 20220721
  Serious: Yes (Disabling)
  Sender: FDA-Public Use
  Company Number: None

PATIENT
  Age: 30 Year
  Sex: Male

DRUGS (1)
  1. VYVANSE [Suspect]
     Active Substance: LISDEXAMFETAMINE DIMESYLATE
     Indication: Learning disability
     Dates: end: 20220415

REACTIONS (3)
  - Therapy cessation [None]
  - Anxiety [None]
  - Drug abuse [None]

NARRATIVE: CASE EVENT DATE: 20220415
